FAERS Safety Report 17994962 (Version 1)
Quarter: 2020Q3

REPORT INFORMATION
  Report Type: Spontaneous
  Country: ES (occurrence: ES)
  Receive Date: 20200708
  Receipt Date: 20200708
  Transmission Date: 20201103
  Serious: Yes (Other)
  Sender: FDA-Public Use
  Company Number: ES-PFIZER INC-2020260708

PATIENT
  Age: 50 Year
  Sex: Female
  Weight: 45 kg

DRUGS (8)
  1. VALIUM [Concomitant]
     Active Substance: DIAZEPAM
     Indication: ANXIETY
     Dosage: 10 MG, 1X/DAY (0?0?2)
     Route: 048
     Dates: start: 20191129
  2. PRISTIQ EXTENDED?RELEASE [Suspect]
     Active Substance: DESVENLAFAXINE SUCCINATE
     Indication: MAJOR DEPRESSION
     Dosage: 100 MG, 1X/DAY (1?0?0)
     Route: 048
     Dates: start: 20191129
  3. SYMBICORT [Concomitant]
     Active Substance: BUDESONIDE\FORMOTEROL FUMARATE DIHYDRATE
     Indication: ASTHMA
     Dosage: UNK (2?0?2)
     Route: 055
     Dates: start: 20000101
  4. CERAZET [Concomitant]
     Indication: CONTRACEPTION
     Dosage: UNK (1?0?0)
     Route: 048
     Dates: start: 20200301
  5. DORMODOR [Concomitant]
     Active Substance: FLURAZEPAM HYDROCHLORIDE
     Indication: INSOMNIA
     Dosage: 30 MG, 1X/DAY (0?0?1)
     Route: 048
     Dates: start: 20200401
  6. PARACETAMOL MYLAN [Concomitant]
     Active Substance: ACETAMINOPHEN
     Indication: MIGRAINE
     Dosage: UNK (IF NEEDED)
     Route: 048
     Dates: start: 20000101
  7. LEXATIN [ESCITALOPRAM OXALATE] [Concomitant]
     Indication: ANXIETY
     Dosage: 1.5 MG, EVERY 8 HOURS (1?1?1)
     Route: 048
     Dates: start: 20191129
  8. IBUPROFENO CINFA [Concomitant]
     Indication: MIGRAINE
     Dosage: UNK (IF NEEDED)
     Route: 048
     Dates: start: 20000101

REACTIONS (1)
  - Diarrhoea [Unknown]

NARRATIVE: CASE EVENT DATE: 20191215
